FAERS Safety Report 6239453-5 (Version None)
Quarter: 2009Q2

REPORT INFORMATION
  Report Type: 
  Country: None (occurrence: None)
  Receive Date: 20090622
  Receipt Date: 20090608
  Transmission Date: 20091009
  Serious: Yes (Hospitalization, Disabling)
  Sender: FDA-Public Use
  Company Number: TH-ROCHE-476131

PATIENT
  Sex: Female
  Weight: 54 kg

DRUGS (18)
  1. METHOXY POLYETHYLENE GLYCOL-EPOETIN BETA [Suspect]
     Dosage: DOSAGE FORM REPORTED AS PFS.
     Route: 058
     Dates: start: 20070718
  2. METHOXY POLYETHYLENE GLYCOL-EPOETIN BETA [Suspect]
     Dosage: DOSAGE FORM REPORTED AS PRE-FILLED SYRINGE.
     Route: 058
     Dates: start: 20061108
  3. METHOXY POLYETHYLENE GLYCOL-EPOETIN BETA [Suspect]
     Dosage: DOSAGE FORM REPORTED AS PREFILLED SYRINGE (PFS).
     Route: 058
     Dates: start: 20050918, end: 20061025
  4. METHOXY POLYETHYLENE GLYCOL-EPOETIN BETA [Suspect]
     Route: 058
  5. METOPROLOL SUCCINATE [Concomitant]
  6. PRAZSOIN HCL [Concomitant]
     Dosage: 3 MG DOSE STARTED ON AN UNSPECIFIED DATE.
  7. ELTROXIN [Concomitant]
     Dosage: 0.1 MCG DOSE STARTED ON AN UNSPECIFIED DATE
  8. FOLIC ACID [Concomitant]
     Dosage: DRUG NAME REPORTED AS ^FOLIC^.
  9. CLONAZEPAM [Concomitant]
  10. VITAMIN E [Concomitant]
  11. CALCIUM ACETATE [Concomitant]
     Dosage: REPORTED AS CAL ACETATE.
  12. VITAMIN D [Concomitant]
     Dosage: DRUG NAME REPORTED AS ^ACTIVE VITAMIN D^. DOSE DECREASED TO 0.25 MCG ON AN UNSPECIFIED DATE.
  13. ZINC SULFATE [Concomitant]
     Dosage: DRUG NAME REPORTED AS ^ZINC SULP^.
  14. Z-BEC [Concomitant]
  15. AMLODIPINE [Concomitant]
  16. SODIUM BICARBONATE [Concomitant]
  17. FE FUMARATE [Concomitant]
  18. ALPHA TOCOPHEROL ACETATE [Concomitant]
     Dosage: DRUG NAME: D-ALPHA-TOCOPHERYL ACETATE

REACTIONS (5)
  - BREAST CANCER [None]
  - HYPOPHAGIA [None]
  - NAUSEA [None]
  - SEPSIS [None]
  - VOMITING [None]
